FAERS Safety Report 20010459 (Version 8)
Quarter: 2024Q1

REPORT INFORMATION
  Report Type: Spontaneous
  Country: IN (occurrence: IN)
  Receive Date: 20211028
  Receipt Date: 20240125
  Transmission Date: 20240409
  Serious: Yes (Other)
  Sender: FDA-Public Use
  Company Number: IN-PFIZER INC-2019181716

PATIENT
  Age: 62 Year
  Sex: Female
  Weight: 35.828 kg

DRUGS (8)
  1. PALBOCICLIB [Suspect]
     Active Substance: PALBOCICLIB
     Indication: Breast cancer metastatic
     Dosage: 125 MG, 1X/DAY
     Route: 048
     Dates: start: 20180621, end: 202208
  2. PALBOCICLIB [Suspect]
     Active Substance: PALBOCICLIB
     Dosage: ONCE DIALY FOR 21 DAYS, EVERY 28 DAYS
     Route: 048
  3. LETROZOLE [Concomitant]
     Active Substance: LETROZOLE
     Dosage: 2.5 MG, 1X/DAY
  4. LETROZOLE [Concomitant]
     Active Substance: LETROZOLE
     Dosage: 5 MG
  5. ZOLEDRONIC ACID [Concomitant]
     Active Substance: ZOLEDRONIC ACID
     Dosage: UNK
  6. CALCIUM CARBONATE\CHOLECALCIFEROL [Concomitant]
     Active Substance: CALCIUM CARBONATE\CHOLECALCIFEROL
     Dosage: UNK, 2X/DAY (1-0-1)
  7. FULVESTRANT [Concomitant]
     Active Substance: FULVESTRANT
     Dosage: 500 MG
     Route: 030
  8. RESTYL [Concomitant]
     Dosage: 0.25 MG, 1X/DAY (0-0-1)

REACTIONS (9)
  - Blood pressure increased [Unknown]
  - Arthralgia [Unknown]
  - Dyspnoea exertional [Unknown]
  - Paraesthesia [Unknown]
  - Headache [Unknown]
  - Pain [Unknown]
  - Haemoglobin decreased [Unknown]
  - Infection [Unknown]
  - Asthenia [Unknown]
